FAERS Safety Report 4509231-3 (Version None)
Quarter: 2004Q4

REPORT INFORMATION
  Report Type: 
  Country: None (occurrence: None)
  Receive Date: 20041025
  Receipt Date: 20040630
  Transmission Date: 20050328
  Serious: Yes (Hospitalization)
  Sender: FDA-Public Use
  Company Number: US-JNJFOC-20040701426

PATIENT
  Age: 56 Year
  Sex: Female

DRUGS (2)
  1. REMICADE [Suspect]
     Indication: RHEUMATOID ARTHRITIS
     Dosage: 3 MG/KG
     Dates: start: 20030101
  2. BENADRYL (DIPHENHYDRAMINE HYDROCHLORIDE) TABLETS [Concomitant]

REACTIONS (4)
  - CHEST DISCOMFORT [None]
  - DIZZINESS [None]
  - INFUSION RELATED REACTION [None]
  - NAUSEA [None]
